FAERS Safety Report 11736216 (Version 1)
Quarter: 2015Q4

REPORT INFORMATION
  Report Type: Spontaneous
  Country: US (occurrence: US)
  Receive Date: 20151113
  Receipt Date: 20151113
  Transmission Date: 20160304
  Serious: Yes (Hospitalization)
  Sender: FDA-Public Use
  Company Number: US-JNJFOC-20150927698

PATIENT
  Sex: Male

DRUGS (4)
  1. DOXORUBICIN HYDROCHLORIDE. [Suspect]
     Active Substance: DOXORUBICIN HYDROCHLORIDE
     Indication: PROSTATE CANCER
     Dosage: ON DAYS 1 TO 3
     Route: 042
  2. IFOSFAMIDE. [Suspect]
     Active Substance: IFOSFAMIDE
     Indication: PROSTATE CANCER
     Dosage: ON DAYS 1 TO 3, TOTAL DOSE: 7500 TO 10000 G/M2
     Route: 065
  3. PEGFILGRASTIM [Concomitant]
     Active Substance: PEGFILGRASTIM
     Indication: PROSTATE CANCER
     Dosage: ON DAY 5
     Route: 058
  4. MESNA. [Suspect]
     Active Substance: MESNA
     Indication: PROSTATE CANCER
     Dosage: ON DAYS 1 TO 4
     Route: 065

REACTIONS (2)
  - Neutropenia [Unknown]
  - Product use issue [Unknown]
